FAERS Safety Report 8187233 (Version 2)
Quarter: 2015Q4

REPORT INFORMATION
  Report Type: Spontaneous
  Country: US (occurrence: US)
  Receive Date: 20111018
  Receipt Date: 20151126
  Transmission Date: 20160305
  Serious: Yes (Other)
  Sender: FDA-Public Use
  Company Number: US-ASTRAZENECA-2011SE28652

PATIENT
  Age: 816 Month
  Sex: Female
  Weight: 78 kg

DRUGS (6)
  1. SPIRIVA [Concomitant]
     Active Substance: TIOTROPIUM BROMIDE MONOHYDRATE
     Indication: CHRONIC OBSTRUCTIVE PULMONARY DISEASE
     Dosage: AT NIGHT
     Dates: start: 20141223
  2. SYMBICORT [Suspect]
     Active Substance: BUDESONIDE\FORMOTEROL FUMARATE DIHYDRATE
     Indication: CHRONIC OBSTRUCTIVE PULMONARY DISEASE
     Dosage: 160/4.5, 2 PUFFS IN THE MORNING AND 2 IN THE EVENING
     Route: 055
     Dates: start: 2010
  3. PRO AIR HFA AER TEV [Concomitant]
     Indication: BRONCHIECTASIS
     Dosage: 2 PUFFS EVERY 4 HOURS FOR THE FIRST 3 WEEKS NOW IT IS 2 PUFFS AS NEEDED
     Route: 055
  4. PRO AIR HFA AER TEV [Concomitant]
     Indication: CHRONIC OBSTRUCTIVE PULMONARY DISEASE
     Dosage: 2 PUFFS EVERY 4 HOURS FOR THE FIRST 3 WEEKS NOW IT IS 2 PUFFS AS NEEDED
     Route: 055
  5. ALBUTEROL. [Concomitant]
     Active Substance: ALBUTEROL
     Indication: CHRONIC OBSTRUCTIVE PULMONARY DISEASE
     Dosage: FOUR TIMES A DAY
     Dates: start: 20141223
  6. FOSAMAX [Concomitant]
     Active Substance: ALENDRONATE SODIUM
     Indication: OSTEOPOROSIS
     Dosage: 70 WEEK

REACTIONS (10)
  - Bronchitis [Unknown]
  - Chest discomfort [Unknown]
  - Eye disorder [Unknown]
  - Body height decreased [Unknown]
  - Cough [Unknown]
  - Dyspnoea [Unknown]
  - Weight decreased [Unknown]
  - Drug dose omission [Unknown]
  - Intentional product misuse [Unknown]
  - Impaired work ability [Unknown]

NARRATIVE: CASE EVENT DATE: 201411
